FAERS Safety Report 18898357 (Version 2)
Quarter: 2021Q4

REPORT INFORMATION
  Report Type: Report from Study
  Country: BR (occurrence: BR)
  Receive Date: 20210216
  Receipt Date: 20211201
  Transmission Date: 20220303
  Serious: Yes (Other)
  Sender: FDA-Public Use
  Company Number: BR-NOVARTISPH-NVSC2021BR033739

PATIENT
  Age: 40 Year
  Sex: Female

DRUGS (6)
  1. XOLAIR [Suspect]
     Active Substance: OMALIZUMAB
     Indication: Asthma
     Dosage: UNK
     Route: 065
     Dates: start: 201502
  2. XOLAIR [Suspect]
     Active Substance: OMALIZUMAB
     Dosage: UNK UNK, UNKNOWN
     Route: 065
  3. XOLAIR [Suspect]
     Active Substance: OMALIZUMAB
     Dosage: (LAST APPLICATION) UNK, UNKNOWN
     Route: 065
     Dates: start: 20210204
  4. XOLAIR [Suspect]
     Active Substance: OMALIZUMAB
     Dosage: UNK
     Route: 065
     Dates: start: 20211007
  5. PREDNISOLONE [Suspect]
     Active Substance: PREDNISOLONE
     Indication: Product used for unknown indication
     Dosage: UNK
     Route: 065
  6. NORFLOXACIN [Suspect]
     Active Substance: NORFLOXACIN
     Indication: Product used for unknown indication
     Dosage: UNK
     Route: 065

REACTIONS (6)
  - SARS-CoV-2 test positive [Recovered/Resolved]
  - Pneumonia [Recovering/Resolving]
  - Respiratory disorder [Recovering/Resolving]
  - Asthmatic crisis [Recovering/Resolving]
  - Dyspnoea [Recovering/Resolving]
  - COVID-19 [Unknown]

NARRATIVE: CASE EVENT DATE: 20210101
